FAERS Safety Report 13998866 (Version 1)
Quarter: 2017Q3

REPORT INFORMATION
  Report Type: Not Available
  Country: US (occurrence: US)
  Receive Date: 20170921
  Receipt Date: 20170921
  Transmission Date: 20171128
  Serious: No
  Sender: FDA-Public Use
  Company Number: US-NEUROCRINE BIOSCIENCES INC.-2017NBI00660

PATIENT
  Age: 62 Year
  Sex: Female
  Weight: 57.66 kg

DRUGS (6)
  1. INGREZZA [Suspect]
     Active Substance: VALBENAZINE
     Indication: TARDIVE DYSKINESIA
     Dosage: TWICE DAILY, ONCE IN THE MORNING AND ONCE IN THE EVENING
     Route: 048
     Dates: start: 201706
  2. SENNOSIDES. [Concomitant]
     Active Substance: SENNOSIDES
     Dosage: BEFORE BEDTIME
  3. CLONAZEPAM. [Concomitant]
     Active Substance: CLONAZEPAM
  4. BENZTROPINE [Concomitant]
     Active Substance: BENZTROPINE
  5. DOCUSATE SODIUM. [Concomitant]
     Active Substance: DOCUSATE SODIUM
     Dosage: BEFORE BEDTIME
  6. FLUPHENAZINE [Concomitant]
     Active Substance: FLUPHENAZINE

REACTIONS (2)
  - Inappropriate schedule of drug administration [Unknown]
  - Somnolence [Not Recovered/Not Resolved]

NARRATIVE: CASE EVENT DATE: 201706
